FAERS Safety Report 23363259 (Version 1)
Quarter: 2024Q1

REPORT INFORMATION
  Report Type: Other
  Country: None (occurrence: RS)
  Receive Date: 20240103
  Receipt Date: 20240103
  Transmission Date: 20240410
  Serious: Yes (Life-Threatening, Hospitalization, Other)
  Sender: FDA-Public Use
  Company Number: RS-Innogenix, LLC-2150086

PATIENT
  Age: 10 Month
  Sex: Female

DRUGS (2)
  1. PROPRANOLOL HYDROCHLORIDE [Suspect]
     Active Substance: PROPRANOLOL HYDROCHLORIDE
     Indication: Haemangioma
     Route: 065
  2. PREDNISOLONE [Concomitant]
     Active Substance: PREDNISOLONE
     Route: 065

REACTIONS (7)
  - Loss of consciousness [Recovered/Resolved]
  - Hyperhidrosis [Recovered/Resolved]
  - Seizure [Recovered/Resolved]
  - Hypoglycaemic seizure [Recovered/Resolved]
  - Status epilepticus [Recovered/Resolved]
  - Urine ketone body present [Recovered/Resolved]
  - Product use in unapproved indication [Unknown]
